FAERS Safety Report 5840471-7 (Version None)
Quarter: 2008Q3

REPORT INFORMATION
  Report Type: 
  Country: None (occurrence: None)
  Receive Date: 20080807
  Receipt Date: 20080807
  Transmission Date: 20090109
  Serious: Yes (Life-Threatening)
  Sender: FDA-Public Use
  Company Number: None

PATIENT
  Age: 47 Year
  Sex: Male
  Weight: 74.8435 kg

DRUGS (2)
  1. LEXAPRO [Suspect]
     Indication: ANXIETY
     Dosage: 1 PID PO
     Route: 048
     Dates: start: 20071201, end: 20080401
  2. LEXAPRO [Suspect]
     Indication: DISTURBANCE IN ATTENTION
     Dosage: 1 PID PO
     Route: 048
     Dates: start: 20071101, end: 20071207

REACTIONS (15)
  - ABDOMINAL PAIN UPPER [None]
  - BUTTERFLY RASH [None]
  - CARDIAC DISORDER [None]
  - DIZZINESS [None]
  - HYPERHIDROSIS [None]
  - INFLUENZA LIKE ILLNESS [None]
  - IRRITABLE BOWEL SYNDROME [None]
  - MUSCLE INJURY [None]
  - MUSCULOSKELETAL PAIN [None]
  - NECK PAIN [None]
  - PAIN IN EXTREMITY [None]
  - PALPITATIONS [None]
  - TEMPERATURE INTOLERANCE [None]
  - TREMOR [None]
  - WHEELCHAIR USER [None]
